FAERS Safety Report 15884123 (Version 2)
Quarter: 2019Q1

REPORT INFORMATION
  Report Type: Spontaneous
  Country: JP (occurrence: JP)
  Receive Date: 20190129
  Receipt Date: 20190312
  Transmission Date: 20190417
  Serious: Yes (Death)
  Sender: FDA-Public Use
  Company Number: JP-ACTELION-A-CH2019-185352

PATIENT
  Age: 73 Year
  Sex: Female

DRUGS (20)
  1. OPSUMIT [Suspect]
     Active Substance: MACITENTAN
     Indication: PULMONARY ARTERIAL HYPERTENSION
     Dosage: 10 MG, QD
     Route: 048
     Dates: start: 20181213, end: 20190118
  2. FAMOTIDINE. [Concomitant]
     Active Substance: FAMOTIDINE
  3. OXYGEN. [Concomitant]
     Active Substance: OXYGEN
  4. SODIUM HYALURONATE [Concomitant]
     Active Substance: HYALURONATE SODIUM
  5. GOREISAN [Concomitant]
     Active Substance: HERBALS
  6. LATANOPROST. [Concomitant]
     Active Substance: LATANOPROST
  7. SOLDEM 3A [Concomitant]
     Active Substance: CARBOHYDRATES\POTASSIUM CHLORIDE\SODIUM CHLORIDE\SODIUM LACTATE
  8. SPIRONOLACTON [Concomitant]
     Active Substance: SPIRONOLACTONE
  9. ASPARA POTASSIUM [Concomitant]
     Active Substance: POTASSIUM ASPARTATE
  10. LANSOPRAZOLE. [Concomitant]
     Active Substance: LANSOPRAZOLE
  11. TRANEXAMIC ACID. [Concomitant]
     Active Substance: TRANEXAMIC ACID
  12. BROTIZOLAM [Concomitant]
     Active Substance: BROTIZOLAM
  13. AZOPT [Concomitant]
     Active Substance: BRINZOLAMIDE
  14. UPTRAVI [Concomitant]
     Active Substance: SELEXIPAG
  15. AZOSEMIDE [Concomitant]
     Active Substance: AZOSEMIDE
  16. TRANSAMIN [Concomitant]
     Active Substance: TRANEXAMIC ACID
  17. ADCIRCA [Concomitant]
     Active Substance: TADALAFIL
  18. DIART [Concomitant]
     Active Substance: AZOSEMIDE
  19. FELBINAC [Concomitant]
     Active Substance: FELBINAC
  20. PL [Concomitant]
     Active Substance: ACETAMINOPHEN\CAFFEINE\PROMETHAZINE\SALICYLAMIDE

REACTIONS (9)
  - Depressed level of consciousness [Fatal]
  - Pyrexia [Fatal]
  - Oxygen saturation decreased [Fatal]
  - General physical health deterioration [Fatal]
  - Headache [Fatal]
  - Pneumonia [Fatal]
  - Cough [Fatal]
  - Bradycardia [Fatal]
  - Respiratory depression [Fatal]

NARRATIVE: CASE EVENT DATE: 20190102
